FAERS Safety Report 9667901 (Version 1)
Quarter: 2013Q4

REPORT INFORMATION
  Report Type: Report from Study
  Country: JP (occurrence: JP)
  Receive Date: 20131104
  Receipt Date: 20131104
  Transmission Date: 20140711
  Serious: Yes (Death, Other)
  Sender: FDA-Public Use
  Company Number: JP-TAKEDA-2013TJP002356

PATIENT
  Age: 78 Year
  Sex: Female

DRUGS (3)
  1. LANSOPRAZOLE [Suspect]
     Indication: PROPHYLAXIS AGAINST GASTROINTESTINAL ULCER
     Dosage: 15 MG, QD
     Route: 048
     Dates: start: 20120825, end: 20130328
  2. BAYASPIRIN [Concomitant]
     Indication: THROMBOSIS PROPHYLAXIS
     Dosage: 100 MG, 1 DAYS, }=3 M BEFORE START OF TAKEPRON
     Route: 048
  3. NESP [Concomitant]
     Dosage: 20 ?G, 1/WEEK, BEFORE START OF TAKEPRON
     Route: 042

REACTIONS (1)
  - Cardiac failure acute [Fatal]
